FAERS Safety Report 23538400 (Version 1)
Quarter: 2024Q1

REPORT INFORMATION
  Report Type: Report from Study
  Country: GT (occurrence: GT)
  Receive Date: 20240219
  Receipt Date: 20240219
  Transmission Date: 20240409
  Serious: Yes (Other)
  Sender: FDA-Public Use
  Company Number: GT-MYLANLABS-2024M1012627

PATIENT
  Age: 62 Year
  Sex: Male

DRUGS (2)
  1. LIPITOR [Suspect]
     Active Substance: ATORVASTATIN CALCIUM
     Indication: Hyperlipidaemia
     Dosage: 1 DOSAGE FORM, QD
     Route: 048
  2. PLAVIX [Concomitant]
     Active Substance: CLOPIDOGREL BISULFATE
     Indication: Oxygen therapy
     Dosage: 1 DOSAGE FORM, QD
     Route: 048

REACTIONS (2)
  - Spinal operation [Not Recovered/Not Resolved]
  - Drug therapy [Not Recovered/Not Resolved]

NARRATIVE: CASE EVENT DATE: 20230911
